FAERS Safety Report 9378362 (Version 3)
Quarter: 2013Q3

REPORT INFORMATION
  Report Type: Spontaneous
  Country: US (occurrence: US)
  Receive Date: 20130701
  Receipt Date: 20130808
  Transmission Date: 20140515
  Serious: Yes (Death)
  Sender: FDA-Public Use
  Company Number: US-PFIZER INC-2013193609

PATIENT
  Age: 54 Year
  Sex: Female

DRUGS (1)
  1. VISTARIL [Suspect]
     Indication: AGITATION
     Dosage: 25 MG, 3X/DAY
     Route: 048
     Dates: start: 2010

REACTIONS (4)
  - Lung disorder [Fatal]
  - Pneumonia [Fatal]
  - Sepsis [Fatal]
  - Respiratory failure [Fatal]
